FAERS Safety Report 4829217-9 (Version None)
Quarter: 2005Q4

REPORT INFORMATION
  Report Type: 
  Country: None (occurrence: None)
  Receive Date: 20051116
  Receipt Date: 20051107
  Transmission Date: 20060501
  Serious: Yes (Other)
  Sender: FDA-Public Use
  Company Number: US-BRISTOL-MYERS SQUIBB COMPANY-13171343

PATIENT
  Sex: Female

DRUGS (1)
  1. PARAPLATIN [Suspect]

REACTIONS (3)
  - PLATELET COUNT DECREASED [None]
  - RENAL FAILURE [None]
  - WHITE BLOOD CELL COUNT DECREASED [None]
